FAERS Safety Report 9899453 (Version 2)
Quarter: 2014Q2

REPORT INFORMATION
  Report Type: Spontaneous
  Country: US (occurrence: US)
  Receive Date: 20140214
  Receipt Date: 20140515
  Transmission Date: 20141212
  Serious: Yes (Other)
  Sender: FDA-Public Use
  Company Number: US-GILEAD-2014-0094506

PATIENT
  Sex: Female

DRUGS (2)
  1. LETAIRIS [Suspect]
     Indication: PRODUCT USED FOR UNKNOWN INDICATION
     Dosage: 5 MG, UNK
     Route: 065
     Dates: start: 20131031
  2. FUROSEMIDE [Suspect]
     Indication: FLUID RETENTION
     Dosage: UNK
     Route: 065

REACTIONS (5)
  - Oxygen saturation decreased [Unknown]
  - Aphonia [Not Recovered/Not Resolved]
  - Memory impairment [Unknown]
  - Dyspnoea [Unknown]
  - Fluid retention [Not Recovered/Not Resolved]
